FAERS Safety Report 4654743-5 (Version None)
Quarter: 2005Q2

REPORT INFORMATION
  Report Type: 
  Country: None (occurrence: None)
  Receive Date: 20050505
  Receipt Date: 20050505
  Transmission Date: 20051028
  Serious: Yes (Life-Threatening, Hospitalization)
  Sender: FDA-Public Use
  Company Number: None

PATIENT
  Age: 57 Year
  Sex: Female
  Weight: 65.7716 kg

DRUGS (6)
  1. RITUXAN 375 MG/M2 [Suspect]
     Indication: B-CELL LYMPHOMA
     Dosage: 375 MG/M2  IV X 1
     Route: 042
     Dates: start: 20050503
  2. PROTONIX [Concomitant]
  3. DYAZIDE [Concomitant]
  4. ZETIA [Concomitant]
  5. FENTANYL [Concomitant]
  6. MORPHINE SULFATE SOLUTION [Concomitant]

REACTIONS (1)
  - TROPONIN I INCREASED [None]
